FAERS Safety Report 7243930-8 (Version None)
Quarter: 2011Q1

REPORT INFORMATION
  Report Type: 
  Country: None (occurrence: None)
  Receive Date: 20110125
  Receipt Date: 20110120
  Transmission Date: 20110831
  Serious: Yes (Hospitalization)
  Sender: FDA-Public Use
  Company Number: B0694811A

PATIENT
  Age: 30 Year
  Sex: Female

DRUGS (3)
  1. LAMICTAL [Suspect]
     Route: 048
  2. INSULIN [Concomitant]
     Route: 065
  3. KEPPRA [Suspect]
     Dosage: 500MG TWICE PER DAY
     Route: 065
     Dates: start: 20091129

REACTIONS (4)
  - PRE-ECLAMPSIA [None]
  - DRUG EXPOSURE DURING PREGNANCY [None]
  - PROTEINURIA [None]
  - HYPERTENSION [None]
